FAERS Safety Report 5388901-1 (Version None)
Quarter: 2007Q3

REPORT INFORMATION
  Report Type: 
  Country: None (occurrence: None)
  Receive Date: 20070713
  Receipt Date: 20070713
  Transmission Date: 20080115
  Serious: Yes (Other)
  Sender: FDA-Public Use
  Company Number: None

PATIENT
  Sex: Female

DRUGS (1)
  1. PROPRANOLOL [Suspect]
     Indication: MIGRAINE
     Dosage: 120 MG Q DAY PO
     Route: 048
     Dates: start: 20010704

REACTIONS (5)
  - CLUSTER HEADACHE [None]
  - MIGRAINE [None]
  - NAUSEA [None]
  - PHOTOPSIA [None]
  - VOMITING [None]
